FAERS Safety Report 18880983 (Version 1)
Quarter: 2021Q1

REPORT INFORMATION
  Report Type: Spontaneous
  Country: US (occurrence: US)
  Receive Date: 20210212
  Receipt Date: 20210212
  Transmission Date: 20210420
  Serious: No
  Sender: FDA-Public Use
  Company Number: US-SA-2021SA039090

PATIENT
  Age: 55 Year
  Sex: Female

DRUGS (3)
  1. CENTRUM FORTE [Concomitant]
     Dosage: UNK
  2. ACETYLCARNITINE;CITRIC ACID;FOLIC ACID;FRUCTOSE;LEVOCARNITINE;SELENIUM [Concomitant]
     Dosage: UNK
  3. AUBAGIO [Suspect]
     Active Substance: TERIFLUNOMIDE
     Indication: MULTIPLE SCLEROSIS
     Dosage: 14 MG, QD
     Route: 048
     Dates: start: 20160501

REACTIONS (1)
  - Arthralgia [Not Recovered/Not Resolved]

NARRATIVE: CASE EVENT DATE: 202101
